FAERS Safety Report 21741528 (Version 1)
Quarter: 2022Q4

REPORT INFORMATION
  Report Type: Report from Study
  Country: US (occurrence: US)
  Receive Date: 20221216
  Receipt Date: 20221216
  Transmission Date: 20230113
  Serious: No
  Sender: FDA-Public Use
  Company Number: US-ABBVIE-4239296

PATIENT
  Sex: Female
  Weight: 63 kg

DRUGS (2)
  1. CREON [Suspect]
     Active Substance: PANCRELIPASE AMYLASE\PANCRELIPASE LIPASE\PANCRELIPASE PROTEASE
     Indication: Pancreatic failure
     Dosage: TIME INTERVAL: 0.33333333 DAYS: FORM STRENGTH: 36000 UNIT
     Route: 048
     Dates: start: 2019
  2. VITAMINS [Concomitant]
     Active Substance: VITAMINS
     Indication: Supplementation therapy

REACTIONS (2)
  - Intentional product misuse [Not Recovered/Not Resolved]
  - Expired product administered [Not Recovered/Not Resolved]
